FAERS Safety Report 14363248 (Version 1)
Quarter: 2018Q1

REPORT INFORMATION
  Report Type: Spontaneous
  Country: CH (occurrence: CH)
  Receive Date: 20180108
  Receipt Date: 20180108
  Transmission Date: 20180509
  Serious: Yes (Death, Hospitalization)
  Sender: FDA-Public Use
  Company Number: CH-BAYER-2017-251352

PATIENT
  Age: 74 Year
  Sex: Female

DRUGS (3)
  1. MARCOUMAR [Suspect]
     Active Substance: PHENPROCOUMON
     Indication: DEEP VEIN THROMBOSIS
     Dosage: 3 MG, PRN ACCORDING QUICK VALUE
     Route: 048
  2. ASPIRIN CARDIO 100 MG [Suspect]
     Active Substance: ASPIRIN
     Dosage: 100 MG, QD
     Route: 048
  3. SELIPRAN [Concomitant]
     Active Substance: PRAVASTATIN SODIUM
     Dosage: 40 MG, QD
     Route: 048

REACTIONS (2)
  - Basal ganglia haemorrhage [Fatal]
  - Cerebral ventricle collapse [Fatal]

NARRATIVE: CASE EVENT DATE: 20170202
